FAERS Safety Report 9702619 (Version 1)
Quarter: 2013Q4

REPORT INFORMATION
  Report Type: Spontaneous
  Country: US (occurrence: US)
  Receive Date: 20131121
  Receipt Date: 20131121
  Transmission Date: 20140711
  Serious: No
  Sender: FDA-Public Use
  Company Number: US-BAXTER-2013BAX045572

PATIENT
  Sex: 0

DRUGS (2)
  1. NEXTERONE_AMIODARONE, HYDROCHLORIDE 1.50 MG/ML_SOLUTION FOR INFUSION_B [Suspect]
     Indication: PRODUCT USED FOR UNKNOWN INDICATION
  2. CARDENE [Suspect]
     Indication: PRODUCT USED FOR UNKNOWN INDICATION
     Route: 042

REACTIONS (4)
  - Product label confusion [Unknown]
  - Intercepted medication error [Recovered/Resolved]
  - Inappropriate schedule of drug administration [Unknown]
  - No adverse event [Recovered/Resolved]
